FAERS Safety Report 9863533 (Version 2)
Quarter: 2014Q1

REPORT INFORMATION
  Report Type: Spontaneous
  Country: ES (occurrence: ES)
  Receive Date: 20140203
  Receipt Date: 20140207
  Transmission Date: 20141002
  Serious: Yes (Life-Threatening, Hospitalization)
  Sender: FDA-Public Use
  Company Number: ES-ASTRAZENECA-2014SE06785

PATIENT
  Age: 36 Year
  Sex: Male

DRUGS (1)
  1. EMLA CREAM [Suspect]
     Indication: DEPILATION
     Dosage: NINE 30 G CONTAINERS (270 G)
     Route: 061

REACTIONS (5)
  - Accidental overdose [Recovered/Resolved]
  - Paraesthesia [Recovered/Resolved]
  - Somnolence [Recovered/Resolved]
  - Alkalosis [Recovered/Resolved]
  - Methaemoglobinaemia [Recovered/Resolved]
